FAERS Safety Report 8224517-7 (Version None)
Quarter: 2012Q1

REPORT INFORMATION
  Report Type: 
  Country: None (occurrence: None)
  Receive Date: 20120321
  Receipt Date: 20120313
  Transmission Date: 20120608
  Serious: Yes (Hospitalization, Other)
  Sender: FDA-Public Use
  Company Number: DE-JNJFOC-20120306969

PATIENT

DRUGS (5)
  1. DOXORUBICIN HCL [Suspect]
     Indication: METASTASES TO PERITONEUM
     Route: 033
  2. FLUOROURACIL [Suspect]
     Indication: METASTASES TO PERITONEUM
     Route: 042
  3. LEUCOVORIN CALCIUM [Suspect]
     Indication: METASTASES TO PERITONEUM
     Route: 042
  4. OXALIPLATIN [Suspect]
     Indication: METASTASES TO PERITONEUM
     Route: 033
  5. MITOMYCIN [Suspect]
     Indication: METASTASES TO PERITONEUM
     Route: 033

REACTIONS (5)
  - ILEUS [None]
  - WOUND INFECTION [None]
  - PULMONARY EMBOLISM [None]
  - ANASTOMOTIC LEAK [None]
  - INCORRECT ROUTE OF DRUG ADMINISTRATION [None]
